FAERS Safety Report 6650762-8 (Version None)
Quarter: 2010Q1

REPORT INFORMATION
  Report Type: 
  Country: None (occurrence: None)
  Receive Date: 20100325
  Receipt Date: 20100310
  Transmission Date: 20100710
  Serious: No
  Sender: FDA-Public Use
  Company Number: US-BIOGENIDEC-2010BI003283

PATIENT
  Age: 38 Year
  Sex: Male

DRUGS (4)
  1. TYSABRI [Suspect]
     Indication: MULTIPLE SCLEROSIS
     Route: 042
     Dates: start: 20091005
  2. BACLOFEN [Concomitant]
  3. PROVIGIL [Concomitant]
  4. ZANAFLEX [Concomitant]

REACTIONS (1)
  - LIVER DISORDER [None]
